FAERS Safety Report 5570902-1 (Version None)
Quarter: 2007Q4

REPORT INFORMATION
  Report Type: 
  Country: None (occurrence: None)
  Receive Date: 20071221
  Receipt Date: 20071101
  Transmission Date: 20080405
  Serious: Yes (Other)
  Sender: FDA-Public Use
  Company Number: GB-BAYER-200716684GDS

PATIENT
  Age: 57 Year
  Sex: Female

DRUGS (2)
  1. NAPROXEN [Suspect]
     Indication: OSTEOARTHRITIS
     Dosage: TOTAL DAILY DOSE: 1000 MG
     Route: 065
  2. ASPIRIN [Suspect]
     Indication: PROPHYLAXIS
     Route: 065

REACTIONS (1)
  - ENTEROCOLITIS HAEMORRHAGIC [None]
